FAERS Safety Report 4304365-0 (Version None)
Quarter: 2004Q1

REPORT INFORMATION
  Report Type: 
  Country: None (occurrence: None)
  Receive Date: 20040224
  Receipt Date: 20021111
  Transmission Date: 20041129
  Serious: Yes (Hospitalization, Other)
  Sender: FDA-Public Use
  Company Number: KII-2002-0007253

PATIENT
  Age: 47 Year
  Sex: Female

DRUGS (3)
  1. MORPHINE SULFATE [Suspect]
     Indication: DRUG USE FOR UNKNOWN INDICATION
  2. LORCET-HD [Suspect]
     Indication: DRUG USE FOR UNKNOWN INDICATION
     Dosage: ORAL
     Route: 048
  3. XANAX [Suspect]
     Indication: DRUG USE FOR UNKNOWN INDICATION
     Dosage: ORAL
     Route: 048

REACTIONS (21)
  - AGGRESSION [None]
  - AGITATION [None]
  - ANGER [None]
  - BLOOD PH INCREASED [None]
  - BLOOD PRESSURE SYSTOLIC INCREASED [None]
  - BREATH SOUNDS DECREASED [None]
  - COMA [None]
  - COUGH [None]
  - DYSPNOEA EXERTIONAL [None]
  - LUNG INFILTRATION [None]
  - MIOSIS [None]
  - MULTIPLE DRUG OVERDOSE [None]
  - PCO2 DECREASED [None]
  - RESPIRATION ABNORMAL [None]
  - RESPIRATORY DISTRESS [None]
  - RESPIRATORY RATE INCREASED [None]
  - SINUS TACHYCARDIA [None]
  - SOMNOLENCE [None]
  - TEMPERATURE REGULATION DISORDER [None]
  - URINE OUTPUT DECREASED [None]
  - WHITE BLOOD CELL COUNT INCREASED [None]
